FAERS Safety Report 9153404 (Version 1)
Quarter: 2013Q1

REPORT INFORMATION
  Report Type: Spontaneous
  Country: GB (occurrence: GB)
  Receive Date: 20130311
  Receipt Date: 20130311
  Transmission Date: 20140127
  Serious: Yes (Other)
  Sender: FDA-Public Use
  Company Number: GB-JNJFOC-20130215321

PATIENT
  Age: 27 Year
  Sex: Male
  Weight: 82.5 kg

DRUGS (2)
  1. RISPERIDONE [Suspect]
     Indication: SCHIZOPHRENIA
     Route: 048
     Dates: start: 20120608
  2. HYOSCINE BUTYLBROMIDE [Suspect]
     Indication: SCHIZOPHRENIA
     Route: 048
     Dates: start: 20121221

REACTIONS (1)
  - Ejaculation failure [Not Recovered/Not Resolved]
